FAERS Safety Report 4968122-4 (Version None)
Quarter: 2006Q1

REPORT INFORMATION
  Report Type: 
  Country: None (occurrence: None)
  Receive Date: 20060201
  Receipt Date: 20051231
  Transmission Date: 20060701
  Serious: No
  Sender: FDA-Public Use
  Company Number: 2006PV006446

PATIENT
  Age: 75 Year
  Sex: Female
  Weight: 107.0489 kg

DRUGS (7)
  1. BYETTA [Suspect]
     Indication: DIABETES MELLITUS NON-INSULIN-DEPENDENT
     Dosage: SEE IMAGE
     Route: 058
     Dates: start: 20051101, end: 20051201
  2. BYETTA [Suspect]
     Indication: DIABETES MELLITUS NON-INSULIN-DEPENDENT
     Dosage: SEE IMAGE
     Route: 058
     Dates: start: 20051201, end: 20051201
  3. ACTOS [Concomitant]
  4. LANTUS [Concomitant]
  5. PRANDIN [Concomitant]
  6. LASIX [Concomitant]
  7. .. [Concomitant]

REACTIONS (5)
  - ANOREXIA [None]
  - CHROMATURIA [None]
  - FEELING JITTERY [None]
  - NAUSEA [None]
  - OEDEMA [None]
